FAERS Safety Report 18570610 (Version 1)
Quarter: 2020Q4

REPORT INFORMATION
  Report Type: Spontaneous
  Country: FR (occurrence: FR)
  Receive Date: 20201202
  Receipt Date: 20201202
  Transmission Date: 20210114
  Serious: Yes (Life-Threatening, Hospitalization)
  Sender: FDA-Public Use
  Company Number: FR-TEVA-2020-FR-1853605

PATIENT
  Age: 73 Year
  Sex: Male

DRUGS (4)
  1. VOLTARENE (DICLOFENAC SODIUM) [Suspect]
     Active Substance: DICLOFENAC SODIUM
     Indication: MYALGIA
     Dosage: 100 MG
     Route: 048
     Dates: start: 20200721
  2. AMOXICILLINE [Suspect]
     Active Substance: AMOXICILLIN
     Indication: DENTAL CARE
     Route: 048
     Dates: start: 20200717, end: 20200721
  3. SPIRIVA [Concomitant]
     Active Substance: TIOTROPIUM BROMIDE MONOHYDRATE
  4. ONBREZ BREEZHALER [Concomitant]
     Active Substance: INDACATEROL

REACTIONS (2)
  - Dyspnoea [Recovered/Resolved]
  - Rash [Recovered/Resolved]

NARRATIVE: CASE EVENT DATE: 20200721
